FAERS Safety Report 15533284 (Version 1)
Quarter: 2018Q4

REPORT INFORMATION
  Report Type: Report from Study
  Country: US (occurrence: US)
  Receive Date: 20181019
  Receipt Date: 20181019
  Transmission Date: 20190205
  Serious: Yes (Death)
  Sender: FDA-Public Use
  Company Number: US-TAIHO ONCOLOGY  INC-EU-2018-01586

PATIENT
  Age: 54 Year
  Sex: Female

DRUGS (12)
  1. DOK [Concomitant]
     Active Substance: DOCUSATE SODIUM
     Dosage: NI
  2. GABAPENTIN. [Concomitant]
     Active Substance: GABAPENTIN
     Dosage: NI
  3. LEVOFLOXACIN. [Concomitant]
     Active Substance: LEVOFLOXACIN
     Dosage: NI
  4. ONDANSETRON [Concomitant]
     Active Substance: ONDANSETRON
     Dosage: NI
  5. PANTOPRAZOLE [Concomitant]
     Active Substance: PANTOPRAZOLE
     Dosage: NI
  6. POLYETHYLENE GLYCOL [Concomitant]
     Active Substance: POLYETHYLENE GLYCOLS
  7. FENTANYL. [Concomitant]
     Active Substance: FENTANYL
     Dosage: NI
  8. OMEPRAZOLE. [Concomitant]
     Active Substance: OMEPRAZOLE
     Dosage: NI
  9. LONSURF [Suspect]
     Active Substance: TIPIRACIL HYDROCHLORIDE\TRIFLURIDINE
     Indication: RECTAL CANCER
     Dosage: CURRENT CYCLE UNKNOWN
     Route: 048
     Dates: start: 20180914, end: 2018
  10. ELIQUIS [Concomitant]
     Active Substance: APIXABAN
     Dosage: NI
  11. PROMETHAZINE [Concomitant]
     Active Substance: PROMETHAZINE\PROMETHAZINE HYDROCHLORIDE
     Dosage: NI
  12. POTASSIUM CHLORIDE. [Concomitant]
     Active Substance: POTASSIUM CHLORIDE

REACTIONS (4)
  - Death [Fatal]
  - Decreased appetite [Not Recovered/Not Resolved]
  - Fatigue [Not Recovered/Not Resolved]
  - Nausea [Not Recovered/Not Resolved]

NARRATIVE: CASE EVENT DATE: 2018
